FAERS Safety Report 24067534 (Version 1)
Quarter: 2024Q3

REPORT INFORMATION
  Report Type: Spontaneous
  Country: US (occurrence: US)
  Receive Date: 20240710
  Receipt Date: 20240710
  Transmission Date: 20241017
  Serious: Yes (Life-Threatening, Hospitalization)
  Sender: BRISTOL MYERS SQUIBB
  Company Number: US-BRISTOL-MYERS SQUIBB COMPANY-2024-108351

PATIENT
  Age: 77 Year
  Sex: Male
  Weight: 62.96 kg

DRUGS (21)
  1. REVLIMID [Suspect]
     Active Substance: LENALIDOMIDE
     Indication: Plasma cell myeloma
     Route: 048
     Dates: start: 20220225
  2. ELIQUIS [Concomitant]
     Active Substance: APIXABAN
  3. DARZALEX [Concomitant]
     Active Substance: DARATUMUMAB
     Dosage: 100 MG/5 ML, 1 VIAL
  4. VELCADE [Concomitant]
     Active Substance: BORTEZOMIB
     Dosage: 1 VIAL
  5. GABAPENTIN [Concomitant]
     Active Substance: GABAPENTIN
  6. ZOLPIDEM [Concomitant]
     Active Substance: ZOLPIDEM TARTRATE
  7. CALCIUM [Concomitant]
     Active Substance: CALCIUM
  8. MAGNESIUM [Concomitant]
     Active Substance: MAGNESIUM
  9. VITAMINS NOS [Concomitant]
     Active Substance: VITAMINS
  10. DEXAMETHASONE [Concomitant]
     Active Substance: DEXAMETHASONE
  11. XGEVA [Concomitant]
     Active Substance: DENOSUMAB
     Dosage: 120MG/1.7ML INJECTION, 1.7 ML
  12. ASPIRIN [Concomitant]
     Active Substance: ASPIRIN
  13. AMLODIPINE BESYLATE [Concomitant]
     Active Substance: AMLODIPINE BESYLATE
  14. ATORVASTATIN [Concomitant]
     Active Substance: ATORVASTATIN
  15. CHLORTHALIDONE [Concomitant]
     Active Substance: CHLORTHALIDONE
  16. DORZOLAMIDE [Concomitant]
     Active Substance: DORZOLAMIDE
     Dosage: OPTHALMIC SOLUTION 10 ML
     Route: 047
  17. NEXIUM I.V. [Concomitant]
     Active Substance: ESOMEPRAZOLE SODIUM
  18. PREDNISOLONE ACETATE [Concomitant]
     Active Substance: PREDNISOLONE ACETATE
     Route: 047
  19. LOSARTAN [Concomitant]
     Active Substance: LOSARTAN
  20. OXYCODONE [Concomitant]
     Active Substance: OXYCODONE
     Dosage: IMMEDIATE RELEASE
  21. SILDENAFIL [Concomitant]
     Active Substance: SILDENAFIL

REACTIONS (3)
  - Fall [Recovering/Resolving]
  - White blood cell count decreased [Unknown]
  - Eye movement disorder [Recovering/Resolving]

NARRATIVE: CASE EVENT DATE: 20240703
